FAERS Safety Report 5478808-3 (Version None)
Quarter: 2007Q4

REPORT INFORMATION
  Report Type: 
  Country: None (occurrence: None)
  Receive Date: 20071002
  Receipt Date: 20070914
  Transmission Date: 20080405
  Serious: Yes (Hospitalization)
  Sender: FDA-Public Use
  Company Number: 2007001711

PATIENT
  Age: 60 Year
  Sex: Male

DRUGS (16)
  1. ERLOTINIB(TABLET) [Suspect]
     Indication: COLON CANCER
     Dosage: 5 MG,QD, ORAL
     Route: 048
     Dates: start: 20061213
  2. BEVACIZUMAB(INJECTION FOR INFUSION) [Suspect]
     Dosage: 5MG/KG (5 MG/KG,Q2W, INTRAVENOUS)
     Route: 042
     Dates: start: 20061227
  3. EVEROLIMUS(EVEROLIMUS) [Suspect]
     Dosage: 5 MG(75 MG,QD), ORAL
     Route: 048
     Dates: start: 20061213
  4. COUMADIN [Concomitant]
  5. INSULIN [Concomitant]
  6. ASPIRIN [Concomitant]
  7. PRINIVIL [Concomitant]
  8. METFORMIN HCL [Concomitant]
  9. VITAMIN CAP [Concomitant]
  10. PROCHLORPERAZINE [Concomitant]
  11. MAGNESIUM HYDROXIDE TAB [Concomitant]
  12. DEXAMETHASONE 0.5MG TAB [Concomitant]
  13. GLIPIZIDE [Concomitant]
  14. PRAVASTATIN [Concomitant]
  15. MEGACE [Concomitant]
  16. BACTRIM [Concomitant]

REACTIONS (2)
  - ANAEMIA [None]
  - PERONEAL NERVE PALSY [None]
